FAERS Safety Report 6517716-3 (Version None)
Quarter: 2009Q4

REPORT INFORMATION
  Report Type: 
  Country: None (occurrence: None)
  Receive Date: 20091224
  Receipt Date: 20091216
  Transmission Date: 20100525
  Serious: Yes (Other)
  Sender: FDA-Public Use
  Company Number: US-ASTRAZENECA-2009UW03084

PATIENT
  Age: 51 Year
  Sex: Female
  Weight: 92.5 kg

DRUGS (9)
  1. SEROQUEL [Suspect]
     Indication: SCHIZOPHRENIA
     Route: 048
     Dates: start: 20040707, end: 20050115
  2. SEROQUEL [Suspect]
     Route: 048
     Dates: start: 20060101, end: 20060801
  3. OTHER PSYCHIATRIC MEDICATION [Concomitant]
  4. ABILIFY [Concomitant]
     Dates: start: 20060101, end: 20061101
  5. HALDOL [Concomitant]
  6. THORAZINE [Concomitant]
  7. ZYPREXA [Concomitant]
  8. FLUPHENAZINE [Concomitant]
     Indication: SCHIZOPHRENIA
     Dates: start: 20060201, end: 20070101
  9. WELLBUTRIN [Concomitant]
     Indication: DEPRESSION

REACTIONS (8)
  - DIABETES MELLITUS [None]
  - DIABETIC COMA [None]
  - KETOACIDOSIS [None]
  - PANCREATITIS [None]
  - PNEUMOCYSTIS JIROVECI PNEUMONIA [None]
  - TOOTHACHE [None]
  - TRANSIENT ISCHAEMIC ATTACK [None]
  - TYPE 2 DIABETES MELLITUS [None]
